FAERS Safety Report 11199509 (Version 1)
Quarter: 2015Q2

REPORT INFORMATION
  Report Type: Other
  Country: GB (occurrence: GB)
  Receive Date: 20150618
  Receipt Date: 20150618
  Transmission Date: 20150821
  Serious: Yes (Hospitalization, Other)
  Sender: FDA-Public Use
  Company Number: GB-MYLANLABS-2015M1018808

PATIENT

DRUGS (3)
  1. PROGRAF [Suspect]
     Active Substance: TACROLIMUS\TACROLIMUS ANHYDROUS
     Indication: IMMUNOSUPPRESSION
     Dosage: 8.5 MG, QD (4.5MG AT 10AM AND 4MG AT 10PM.)
     Route: 048
  2. DOXYCYCLINE. [Interacting]
     Active Substance: DOXYCYCLINE
     Indication: SINUSITIS
     Dosage: 100 MG, QD
     Route: 048
     Dates: start: 20150520
  3. ELIQUIS [Interacting]
     Active Substance: APIXABAN
     Dosage: 2.5 MG, BID
     Route: 048
     Dates: start: 20150505

REACTIONS (5)
  - Drug interaction [Unknown]
  - Headache [Unknown]
  - Renal impairment [Unknown]
  - Drug level changed [Unknown]
  - Seizure [Unknown]
